FAERS Safety Report 8478960-1 (Version None)
Quarter: 2012Q2

REPORT INFORMATION
  Report Type: 
  Country: None (occurrence: None)
  Receive Date: 20120629
  Receipt Date: 20120618
  Transmission Date: 20120825
  Serious: Yes (Other)
  Sender: FDA-Public Use
  Company Number: US-ROCHE-1024491

PATIENT
  Sex: Male

DRUGS (4)
  1. PEGASYS [Suspect]
     Indication: HEPATITIS C
     Route: 058
     Dates: start: 20111113
  2. BOCEPREVIR [Suspect]
     Indication: HEPATITIS C
     Dates: start: 20111212
  3. RIBAVIRIN [Suspect]
     Dosage: DOSE REDUCED
     Route: 048
     Dates: start: 20120125
  4. RIBAVIRIN [Suspect]
     Indication: HEPATITIS C
     Route: 048
     Dates: start: 20111113

REACTIONS (19)
  - FULL BLOOD COUNT DECREASED [None]
  - JOINT INJURY [None]
  - ABDOMINAL PAIN LOWER [None]
  - PAIN [None]
  - MUSCULOSKELETAL DISCOMFORT [None]
  - SYNCOPE [None]
  - IRRITABILITY [None]
  - DYSPNOEA [None]
  - CYSTITIS RADIATION [None]
  - BACK PAIN [None]
  - CYST [None]
  - INSOMNIA [None]
  - ARTHRALGIA [None]
  - PAIN IN JAW [None]
  - BLOOD URINE PRESENT [None]
  - HAEMOGLOBIN DECREASED [None]
  - EMOTIONAL DISORDER [None]
  - NERVE INJURY [None]
  - FATIGUE [None]
